FAERS Safety Report 6362139-3 (Version None)
Quarter: 2009Q3

REPORT INFORMATION
  Report Type: 
  Country: None (occurrence: None)
  Receive Date: 20090918
  Receipt Date: 20090914
  Transmission Date: 20100115
  Serious: Yes (Other)
  Sender: FDA-Public Use
  Company Number: CA-JNJCH-2009024653

PATIENT
  Sex: Female

DRUGS (1)
  1. LISTERINE WHITENING DISOLVING STRIPS [Suspect]
     Indication: DRUG USE FOR UNKNOWN INDICATION
     Dosage: TEXT:UNSPECIFIED
     Route: 048

REACTIONS (3)
  - CONDITION AGGRAVATED [None]
  - SENSITIVITY OF TEETH [None]
  - TOOTH INJURY [None]
